FAERS Safety Report 9298797 (Version 2)
Quarter: 2013Q2

REPORT INFORMATION
  Report Type: Spontaneous
  Country: FR (occurrence: None)
  Receive Date: 20130515
  Receipt Date: 20130522
  Transmission Date: 20140414
  Serious: Yes (Other)
  Sender: FDA-Public Use
  Company Number: 2013-1940

PATIENT
  Age: 7 Year
  Sex: Female
  Weight: 17 kg

DRUGS (1)
  1. DYSPORT (BOTULINUM TOXIN TYPE A) (BOTULINUM TOXIN TYPE A) [Suspect]
     Indication: MUSCLE SPASTICITY
     Dosage: 160 UNITS ( 160 UNITS, 1 IN 1 CYCLE (S),
     Route: 030
     Dates: start: 201302, end: 201302

REACTIONS (4)
  - Blood creatine phosphokinase increased [None]
  - Blood lactate dehydrogenase increased [None]
  - Rhabdomyolysis [None]
  - Viral infection [None]
